FAERS Safety Report 9893462 (Version 2)
Quarter: 2014Q1

REPORT INFORMATION
  Report Type: Report from Study
  Country: US (occurrence: US)
  Receive Date: 20140213
  Receipt Date: 20140213
  Transmission Date: 20141002
  Serious: Yes (Other)
  Sender: FDA-Public Use
  Company Number: US-BRISTOL-MYERS SQUIBB COMPANY-19467448

PATIENT
  Age: 3 Month
  Sex: Male
  Weight: 3.2 kg

DRUGS (4)
  1. REYATAZ [Suspect]
     Route: 064
     Dates: end: 20121021
  2. COMPLERA [Suspect]
     Dosage: 1DF=1TABS/CAPS
     Route: 064
     Dates: start: 20121022
  3. NORVIR [Suspect]
     Route: 064
     Dates: end: 20121021
  4. TRUVADA [Suspect]
     Dosage: 1DF=1TAB/CAPS
     Route: 064
     Dates: end: 20121021

REACTIONS (1)
  - Polydactyly [Unknown]
